FAERS Safety Report 11900493 (Version 1)
Quarter: 2016Q1

REPORT INFORMATION
  Report Type: Report from Study
  Country: US (occurrence: US)
  Receive Date: 20160108
  Receipt Date: 20160108
  Transmission Date: 20160526
  Serious: No
  Sender: FDA-Public Use
  Company Number: US-ABBVIE-15P-163-1431539-00

PATIENT
  Sex: Male

DRUGS (3)
  1. VIEKIRA PAK [Suspect]
     Active Substance: DASABUVIR\OMBITASVIR\PARITAPREVIR\RITONAVIR
     Indication: HEPATITIS C
     Dosage: 2 PINK / 2 BEIGE
     Route: 048
     Dates: start: 20150624
  2. RIBASPHERE [Concomitant]
     Active Substance: RIBAVIRIN
     Indication: HEPATITIS C
  3. VIEKIRA PAK [Suspect]
     Active Substance: DASABUVIR\OMBITASVIR\PARITAPREVIR\RITONAVIR
     Dosage: TAKE VIEKIRA PER MANUFACTURER PACKAGE DIRECTIONS IN THE AM AND PM
     Route: 048
     Dates: start: 20150624

REACTIONS (4)
  - Fatigue [Unknown]
  - Decreased appetite [Unknown]
  - Pollakiuria [Unknown]
  - Nausea [Unknown]
